FAERS Safety Report 21999580 (Version 1)
Quarter: 2023Q1

REPORT INFORMATION
  Report Type: Spontaneous
  Country: US (occurrence: None)
  Receive Date: 20230215
  Receipt Date: 20230215
  Transmission Date: 20230418
  Serious: Yes (Disabling)
  Sender: FDA-Public Use
  Company Number: None

PATIENT
  Sex: Female
  Weight: 153 kg

DRUGS (2)
  1. XANAX [Suspect]
     Active Substance: ALPRAZOLAM
     Indication: Anxiety
     Dates: start: 20060410
  2. XANAX [Suspect]
     Active Substance: ALPRAZOLAM
     Indication: Panic attack

REACTIONS (2)
  - Amnesia [None]
  - Fear [None]

NARRATIVE: CASE EVENT DATE: 19640410
